FAERS Safety Report 21984519 (Version 1)
Quarter: 2023Q1

REPORT INFORMATION
  Report Type: Spontaneous
  Country: US (occurrence: None)
  Receive Date: 20230210
  Receipt Date: 20230210
  Transmission Date: 20230418
  Serious: Yes (Life-Threatening, Hospitalization)
  Sender: FDA-Public Use
  Company Number: None

PATIENT
  Age: 42 Year
  Sex: Male
  Weight: 78 kg

DRUGS (3)
  1. GAMMAGARD LIQUID [Suspect]
     Active Substance: HUMAN IMMUNOGLOBULIN G
     Dosage: OTHER FREQUENCY : ONCE;?
     Route: 041
     Dates: start: 20230201, end: 20230201
  2. ACETAMINOPHEN [Concomitant]
     Active Substance: ACETAMINOPHEN
     Dates: start: 20230201, end: 20230201
  3. DIPHENHYDRAMINE [Concomitant]
     Active Substance: DIPHENHYDRAMINE
     Dates: start: 20230201, end: 20230201

REACTIONS (12)
  - Dyspnoea [None]
  - Palpitations [None]
  - Supraventricular tachycardia [None]
  - Ventricular extrasystoles [None]
  - Hypotension [None]
  - Respiratory failure [None]
  - Ejection fraction decreased [None]
  - Pyrexia [None]
  - Hypokinesia [None]
  - Pericardial effusion [None]
  - Acute lung injury [None]
  - Lung opacity [None]

NARRATIVE: CASE EVENT DATE: 20230201
